FAERS Safety Report 6223415-8 (Version None)
Quarter: 2009Q2

REPORT INFORMATION
  Report Type: 
  Country: None (occurrence: None)
  Receive Date: 20090611
  Receipt Date: 20090609
  Transmission Date: 20091009
  Serious: Yes (Other)
  Sender: FDA-Public Use
  Company Number: SE-ABBOTT-09P-150-0578809-00

PATIENT
  Sex: Male

DRUGS (6)
  1. ERGENYL [Suspect]
     Indication: EPILEPSY
     Route: 048
     Dates: start: 20000101, end: 20090320
  2. CRESTOR [Concomitant]
     Indication: DRUG USE FOR UNKNOWN INDICATION
  3. LEVOTHYROXINE SODIUM [Concomitant]
     Indication: DRUG USE FOR UNKNOWN INDICATION
  4. FOLACIN [Concomitant]
     Indication: DRUG USE FOR UNKNOWN INDICATION
  5. BEHEPAN [Concomitant]
     Indication: DRUG USE FOR UNKNOWN INDICATION
  6. TENORMIN [Concomitant]
     Indication: DRUG USE FOR UNKNOWN INDICATION

REACTIONS (7)
  - APATHY [None]
  - ATAXIA [None]
  - COORDINATION ABNORMAL [None]
  - DEMENTIA [None]
  - MOOD ALTERED [None]
  - PERSONALITY DISORDER [None]
  - TREMOR [None]
